FAERS Safety Report 7360857-1 (Version None)
Quarter: 2011Q1

REPORT INFORMATION
  Report Type: 
  Country: None (occurrence: None)
  Receive Date: 20110318
  Receipt Date: 20110309
  Transmission Date: 20110831
  Serious: Yes (Death, Hospitalization)
  Sender: FDA-Public Use
  Company Number: DE-SOLVAY-00309004521

PATIENT
  Age: 24727 Day
  Sex: Male
  Weight: 78 kg

DRUGS (8)
  1. DURAGESIC-100 [Concomitant]
     Indication: PAIN PROPHYLAXIS
     Dosage: DAILY DOSE:  UNKNOWN; AS USED: 75 MICROGRAMS
     Route: 062
     Dates: start: 20090801
  2. CERNEVIT-12 [Concomitant]
     Indication: PARENTERAL NUTRITION
     Dosage: DAILY DOSE: 750 MILLIGRAM(S)
     Route: 042
     Dates: start: 20090801
  3. MOVIPREP [Concomitant]
     Indication: INFREQUENT BOWEL MOVEMENTS
     Dosage: DAILY DOSE:  UNKNOWN; FREQUENCY: AS NEEDED
     Route: 048
     Dates: start: 20090801
  4. TENORMIN [Concomitant]
     Indication: HYPERTENSION
     Dosage: DAILY DOSE: 25 MILLIGRAM(S)
     Route: 048
     Dates: start: 20090101
  5. PALLADONE [Concomitant]
     Indication: PAIN PROPHYLAXIS
     Dosage: DAILY DOSE:  UNKNOWN
     Route: 048
     Dates: start: 20090801
  6. GEMCITABINE [Suspect]
     Indication: METASTATIC NEOPLASM
     Dosage: DAILY DOSE:  UNKNOWN
     Route: 042
     Dates: start: 20090601, end: 20090901
  7. CREON [Suspect]
     Indication: PANCREATIC ENZYME ABNORMALITY
     Dosage: DAILY DOSE: 15X25.000IE, AS USED: 25.000IE, FREQUENCY: 15
     Route: 048
     Dates: start: 20090507, end: 20090821
  8. STRUCTOKABIVEN [Concomitant]
     Indication: PARENTERAL NUTRITION
     Dosage: DAILY DOSE:  UNKNOWN
     Route: 042
     Dates: start: 20090801

REACTIONS (5)
  - PYREXIA [None]
  - REFLUX OESOPHAGITIS [None]
  - ESCHERICHIA SEPSIS [None]
  - JAUNDICE [None]
  - METASTATIC NEOPLASM [None]
